FAERS Safety Report 13407045 (Version 2)
Quarter: 2017Q2

REPORT INFORMATION
  Report Type: Spontaneous
  Country: US (occurrence: US)
  Receive Date: 20170405
  Receipt Date: 20170501
  Transmission Date: 20170830
  Serious: No
  Sender: FDA-Public Use
  Company Number: GXBR2017US001049

PATIENT
  Sex: Male
  Weight: 6.12 kg

DRUGS (5)
  1. OMNITROPE [Suspect]
     Active Substance: SOMATROPIN
     Dosage: 0.3 MG, QD
     Route: 058
     Dates: start: 20170301
  2. OMNITROPE [Suspect]
     Active Substance: SOMATROPIN
     Indication: HYPOPITUITARISM
     Dosage: 0.2 MG, QD
     Route: 058
     Dates: start: 201612, end: 20170301
  3. LEVOTHYROXINE. [Concomitant]
     Active Substance: LEVOTHYROXINE
     Indication: HYPOPITUITARISM
     Dosage: MON, WED, FRI TAKE A WHOLE PILL AND THEN 1/2 TABLE THE OTHER DAYS
     Route: 048
     Dates: start: 201609, end: 20170301
  4. HIDROCORTISON [Concomitant]
     Active Substance: HYDROCORTISONE
     Indication: HYPOPITUITARISM
     Dosage: UNK DF, TID
     Route: 048
     Dates: start: 20160527
  5. LEVOTHYROXINE. [Concomitant]
     Active Substance: LEVOTHYROXINE
     Dosage: UNK DF, QD
     Route: 048
     Dates: start: 20170301

REACTIONS (1)
  - Growth retardation [Not Recovered/Not Resolved]
